FAERS Safety Report 6176125-X (Version None)
Quarter: 2009Q2

REPORT INFORMATION
  Report Type: 
  Country: None (occurrence: None)
  Receive Date: 20090501
  Receipt Date: 20090424
  Transmission Date: 20091009
  Serious: Yes (Hospitalization)
  Sender: FDA-Public Use
  Company Number: JP-GENENTECH-281980

PATIENT
  Sex: Male

DRUGS (12)
  1. RITUXAN [Suspect]
     Indication: DIFFUSE LARGE B-CELL LYMPHOMA
     Dosage: 590 MG, X1
     Route: 042
     Dates: start: 20080820, end: 20080820
  2. RITUXAN [Suspect]
     Dosage: 580 MG, UNK
     Route: 042
     Dates: start: 20080912
  3. ADRIACIN [Concomitant]
     Indication: DIFFUSE LARGE B-CELL LYMPHOMA
     Dosage: 70 MG, UNK
     Dates: start: 20080820
  4. ENDOXAN [Concomitant]
     Indication: DIFFUSE LARGE B-CELL LYMPHOMA
     Dosage: 1100 MG, UNK
     Dates: start: 20080820
  5. ONCOVIN [Concomitant]
     Indication: DIFFUSE LARGE B-CELL LYMPHOMA
     Dosage: 2 MG, UNK
     Dates: start: 20080820
  6. PREDONINE [Concomitant]
     Indication: DIFFUSE LARGE B-CELL LYMPHOMA
     Dosage: 100 MG, UNK
     Route: 048
     Dates: start: 20080820
  7. FOIPAN [Concomitant]
     Indication: HYPERAMYLASAEMIA
     Dosage: 600 MG, QD
     Route: 048
     Dates: start: 20080801
  8. NAUZELIN [Concomitant]
     Indication: VOMITING
     Dosage: 30 MG, QD
     Route: 048
     Dates: start: 20080820
  9. VOLTAREN [Concomitant]
     Indication: HYPERSENSITIVITY
     Dosage: 200 MG, SINGLE
     Route: 048
     Dates: start: 20080820
  10. POLARAMINE [Concomitant]
     Indication: HYPERSENSITIVITY
     Dosage: 2 MG, SINGLE
     Route: 048
     Dates: start: 20080820
  11. GASTER [Concomitant]
     Indication: GASTRITIS
     Dosage: 40 MG, QD
     Route: 048
     Dates: start: 20080819
  12. ZYLORIC [Concomitant]
     Indication: HYPERURICAEMIA
     Dosage: 200 MG, QD
     Route: 048
     Dates: start: 20080819

REACTIONS (1)
  - PNEUMOCYSTIS JIROVECI PNEUMONIA [None]
